FAERS Safety Report 10541944 (Version 1)
Quarter: 2014Q4

REPORT INFORMATION
  Report Type: Spontaneous
  Country: ZA (occurrence: ZA)
  Receive Date: 20141024
  Receipt Date: 20141024
  Transmission Date: 20150529
  Serious: Yes (Other)
  Sender: FDA-Public Use
  Company Number: ZA-PFIZER INC-2014293341

PATIENT

DRUGS (1)
  1. ORELOX [Suspect]
     Active Substance: CEFPODOXIME
     Dosage: UNK
     Route: 048

REACTIONS (1)
  - Seizure [Unknown]
